FAERS Safety Report 4837332-9 (Version None)
Quarter: 2005Q4

REPORT INFORMATION
  Report Type: 
  Country: None (occurrence: None)
  Receive Date: 20051128
  Receipt Date: 20051114
  Transmission Date: 20060501
  Serious: Yes (Hospitalization, Other)
  Sender: FDA-Public Use
  Company Number: GR-JNJFOC-20051103447

PATIENT
  Age: 77 Year
  Sex: Female

DRUGS (4)
  1. INFLIXIMAB [Suspect]
     Indication: CROHN'S DISEASE
     Dosage: AT WEEKS 0, 2 AND 6 AS AN INDUCTION REGIMEN AND THEN EVERY 8 WEEKS. TOTAL OF 6 DOSES OVER 8 MONTHS.
     Route: 042
  2. METHYLPREDNISOLONE [Concomitant]
     Route: 048
  3. GLYBENCLAMIDE [Concomitant]
     Indication: DIABETES MELLITUS
     Route: 048
  4. ACETYLCHOLINE ESTERASE INHIBITOR [Concomitant]
     Route: 048

REACTIONS (5)
  - ACINETOBACTER INFECTION [None]
  - CANDIDIASIS [None]
  - NOCARDIOSIS [None]
  - PNEUMOCYSTIS JIROVECI PNEUMONIA [None]
  - PROTEUS INFECTION [None]
